FAERS Safety Report 7491321-7 (Version None)
Quarter: 2011Q2

REPORT INFORMATION
  Report Type: 
  Country: None (occurrence: None)
  Receive Date: 20110519
  Receipt Date: 20110502
  Transmission Date: 20111010
  Serious: Yes (Hospitalization)
  Sender: FDA-Public Use
  Company Number: B0720066A

PATIENT
  Sex: Female

DRUGS (7)
  1. METFORMIN HCL [Concomitant]
     Dosage: 1000MG PER DAY
  2. ASCAL [Concomitant]
     Dosage: 100MG PER DAY
  3. PLAVIX [Concomitant]
     Dosage: 75MG PER DAY
  4. SIMVASTATIN [Concomitant]
     Dosage: 20MG PER DAY
  5. LASIX [Concomitant]
     Dosage: 80MG PER DAY
  6. LANOXIN [Suspect]
     Indication: ATRIAL FIBRILLATION
     Dosage: 125MG PER DAY
     Route: 048
     Dates: start: 20110118, end: 20110222
  7. IBANDRONATE [Concomitant]

REACTIONS (3)
  - WEIGHT DECREASED [None]
  - BRADYCARDIA [None]
  - NAUSEA [None]
